FAERS Safety Report 17093927 (Version 1)
Quarter: 2019Q4

REPORT INFORMATION
  Report Type: Report from Study
  Country: RU (occurrence: RU)
  Receive Date: 20191129
  Receipt Date: 20191129
  Transmission Date: 20200122
  Serious: Yes (Other)
  Sender: FDA-Public Use
  Company Number: RU-ASTRAZENECA-2019SF69643

PATIENT
  Age: 68 Year
  Sex: Female
  Weight: 82 kg

DRUGS (9)
  1. CARDIOMAGNYL [Concomitant]
     Active Substance: ASPIRIN\MAGNESIUM HYDROXIDE
  2. FORXIGA [Suspect]
     Active Substance: DAPAGLIFLOZIN
     Indication: TYPE 2 DIABETES MELLITUS
     Route: 048
     Dates: start: 201710, end: 20191125
  3. SIOFOR [Concomitant]
     Active Substance: METFORMIN HYDROCHLORIDE
     Indication: TYPE 2 DIABETES MELLITUS
     Dosage: 1000.0MG UNKNOWN
     Route: 048
     Dates: end: 20191125
  4. ATENOLOL. [Concomitant]
     Active Substance: ATENOLOL
  5. TORVACARD [Concomitant]
     Active Substance: ATORVASTATIN CALCIUM
  6. MANINIL [Concomitant]
     Active Substance: GLYBURIDE
     Indication: TYPE 2 DIABETES MELLITUS
     Dosage: UNKNOWN
     Route: 048
  7. LOKREN [Concomitant]
     Active Substance: BETAXOLOL HYDROCHLORIDE
  8. LORTENZA [Concomitant]
  9. MILDRONATE [Concomitant]
     Active Substance: MELDONIUM

REACTIONS (2)
  - Glycosuria [Not Recovered/Not Resolved]
  - Ketonuria [Not Recovered/Not Resolved]
